FAERS Safety Report 16625023 (Version 1)
Quarter: 2019Q3

REPORT INFORMATION
  Report Type: Spontaneous
  Country: US (occurrence: US)
  Receive Date: 20190611
  Receipt Date: 20190611
  Transmission Date: 20191004
  Serious: No
  Sender: FDA-Public Use
  Company Number: None

PATIENT
  Age: 36 Year
  Sex: Female

DRUGS (1)
  1. ENBREL [Suspect]
     Active Substance: ETANERCEPT
     Indication: RHEUMATOID ARTHRITIS
     Route: 058
     Dates: start: 20190226

REACTIONS (6)
  - Injection site reaction [None]
  - Malaise [None]
  - Urticaria [None]
  - Injection site warmth [None]
  - Injection site pruritus [None]
  - Diarrhoea [None]

NARRATIVE: CASE EVENT DATE: 201906
